FAERS Safety Report 8739812 (Version 2)
Quarter: 2012Q4

REPORT INFORMATION
  Report Type: 
  Country: GB (occurrence: GB)
  Receive Date: 20120823
  Receipt Date: 20121008
  Transmission Date: 20130627
  Serious: Yes (Other)
  Sender: FDA-Public Use
  Company Number: GB-ASTRAZENECA-2012SE57458

PATIENT
  Age: 58 Year
  Sex: Male
  Weight: 95.2 kg

DRUGS (2)
  1. ROSUVASTATIN [Suspect]
     Indication: HYPERCHOLESTEROLAEMIA
     Route: 048
     Dates: start: 20111103
  2. THYROXINE SODIUM [Concomitant]

REACTIONS (3)
  - Limb discomfort [Unknown]
  - Pain in extremity [Unknown]
  - Pain in extremity [Unknown]
